FAERS Safety Report 12758351 (Version 1)
Quarter: 2016Q3

REPORT INFORMATION
  Report Type: Spontaneous
  Country: US (occurrence: US)
  Receive Date: 20160917
  Receipt Date: 20160917
  Transmission Date: 20161109
  Serious: Yes (Other)
  Sender: FDA-Public Use
  Company Number: None

PATIENT
  Age: 40 Year
  Sex: Female
  Weight: 87.75 kg

DRUGS (6)
  1. TOPAMAX [Concomitant]
     Active Substance: TOPIRAMATE
  2. WOMEN^S ONE A DAY BONE HEALTH [Concomitant]
  3. SYNTHROID [Concomitant]
     Active Substance: LEVOTHYROXINE SODIUM
  4. LUPRON [Suspect]
     Active Substance: LEUPROLIDE ACETATE
     Indication: VAGINAL HAEMORRHAGE
     Dosage: OTHER STRENGTH:;OTHER DOSE:;OTHER FREQUENCY:EVERY 3 MO;OTHER ROUTE:
     Route: 030
     Dates: start: 20160915
  5. PLAQIUNEL [Concomitant]
  6. ZOLOFT [Concomitant]
     Active Substance: SERTRALINE HYDROCHLORIDE

REACTIONS (6)
  - Eyelid oedema [None]
  - Condition aggravated [None]
  - Migraine [None]
  - Dry throat [None]
  - Throat tightness [None]
  - Sjogren^s syndrome [None]

NARRATIVE: CASE EVENT DATE: 20160916
